FAERS Safety Report 8240963-X (Version None)
Quarter: 2012Q1

REPORT INFORMATION
  Report Type: 
  Country: None (occurrence: None)
  Receive Date: 20120328
  Receipt Date: 20120314
  Transmission Date: 20120608
  Serious: Yes (Hospitalization)
  Sender: FDA-Public Use
  Company Number: US-MYLANLABS-2012S1005963

PATIENT
  Age: 49 Year
  Sex: Male
  Weight: 74 kg

DRUGS (7)
  1. GLYBURIDE [Suspect]
     Indication: INTENTIONAL OVERDOSE
     Dosage: 350MG
     Route: 048
  2. GLYBURIDE [Suspect]
     Route: 065
  3. VARDENAFIL HYDROCHLORIDE (LEVITRA) [Concomitant]
     Indication: ERECTILE DYSFUNCTION
     Dosage: 10MG AS NEEDED BEFORE SEXUAL ACTIVITY
     Route: 065
  4. LISINOPRIL [Concomitant]
     Dosage: 5MG DAILY
     Route: 065
  5. GEMFIBROZIL [Concomitant]
     Route: 065
  6. METFORMIN HCL [Suspect]
     Indication: INTENTIONAL OVERDOSE
     Dosage: 52G
     Route: 048
  7. METFORMIN HCL [Suspect]
     Route: 065

REACTIONS (8)
  - INTENTIONAL OVERDOSE [None]
  - LACTIC ACIDOSIS [None]
  - SUICIDE ATTEMPT [None]
  - HYPOTENSION [None]
  - HYPOGLYCAEMIA [None]
  - DEAFNESS NEUROSENSORY [None]
  - RESPIRATORY FAILURE [None]
  - RENAL FAILURE ACUTE [None]
